FAERS Safety Report 18173053 (Version 2)
Quarter: 2020Q4

REPORT INFORMATION
  Report Type: Spontaneous
  Country: RU (occurrence: RU)
  Receive Date: 20200820
  Receipt Date: 20201204
  Transmission Date: 20210113
  Serious: Yes (Other)
  Sender: FDA-Public Use
  Company Number: RU-ROCHE-2660117

PATIENT
  Age: 48 Year
  Sex: Male

DRUGS (4)
  1. EMICIZUMAB. [Suspect]
     Active Substance: EMICIZUMAB
     Indication: PRODUCT USED FOR UNKNOWN INDICATION
     Route: 058
     Dates: start: 202001
  2. EMICIZUMAB. [Suspect]
     Active Substance: EMICIZUMAB
     Route: 058
     Dates: start: 20200715
  3. EMICIZUMAB. [Suspect]
     Active Substance: EMICIZUMAB
     Route: 058
     Dates: start: 20200805
  4. EMICIZUMAB. [Suspect]
     Active Substance: EMICIZUMAB
     Route: 058
     Dates: start: 20200729

REACTIONS (5)
  - Procedural haemorrhage [Unknown]
  - Pain [Recovered/Resolved]
  - Haemophilia [Unknown]
  - Off label use [Unknown]
  - Product use in unapproved indication [Unknown]

NARRATIVE: CASE EVENT DATE: 20200723
